FAERS Safety Report 7759470-3 (Version None)
Quarter: 2011Q3

REPORT INFORMATION
  Report Type: 
  Country: None (occurrence: None)
  Receive Date: 20110919
  Receipt Date: 20110919
  Transmission Date: 20111222
  Serious: Yes (Other)
  Sender: FDA-Public Use
  Company Number: None

PATIENT
  Sex: Female
  Weight: 133.8 kg

DRUGS (1)
  1. NICOTINE [Suspect]
     Indication: SMOKING CESSATION THERAPY
     Dates: start: 20110913, end: 20110913

REACTIONS (4)
  - MOOD SWINGS [None]
  - TREMOR [None]
  - PRODUCT SUBSTITUTION ISSUE [None]
  - AGITATION [None]
